FAERS Safety Report 25241903 (Version 2)
Quarter: 2025Q2

REPORT INFORMATION
  Report Type: Spontaneous
  Country: ES (occurrence: ES)
  Receive Date: 20250426
  Receipt Date: 20250523
  Transmission Date: 20250717
  Serious: Yes (Death, Life-Threatening, Hospitalization, Disabling)
  Sender: MERCK SHARP & DOHME LLC
  Company Number: ES-009507513-2277378

PATIENT
  Sex: Male
  Weight: 83 kg

DRUGS (11)
  1. PEMBROLIZUMAB [Suspect]
     Active Substance: PEMBROLIZUMAB
     Indication: Non-small cell lung cancer metastatic
     Route: 042
     Dates: start: 20231002, end: 20240924
  2. PEMETREXED [Suspect]
     Active Substance: PEMETREXED
     Indication: Non-small cell lung cancer metastatic
     Route: 042
     Dates: start: 20231002, end: 20240924
  3. CARBOPLATIN [Suspect]
     Active Substance: CARBOPLATIN
     Indication: Non-small cell lung cancer metastatic
     Route: 042
     Dates: start: 20231002, end: 20231002
  4. CARBOPLATIN [Suspect]
     Active Substance: CARBOPLATIN
     Indication: Non-small cell lung cancer metastatic
     Route: 042
     Dates: start: 20231023, end: 20231023
  5. CARBOPLATIN [Suspect]
     Active Substance: CARBOPLATIN
     Indication: Non-small cell lung cancer metastatic
     Route: 042
     Dates: start: 20231113, end: 20231113
  6. CARBOPLATIN [Suspect]
     Active Substance: CARBOPLATIN
     Indication: Non-small cell lung cancer metastatic
     Route: 042
     Dates: start: 20231204, end: 20231204
  7. AMERIDE [Concomitant]
     Dates: start: 20240429
  8. DEXTROMETORFAN [Concomitant]
     Dates: start: 20240924
  9. FRESUBIN PROTEIN ENERGY [Concomitant]
     Dates: start: 20240924
  10. AMOXICILLIN\CLAVULANATE POTASSIUM [Concomitant]
     Active Substance: AMOXICILLIN\CLAVULANATE POTASSIUM
     Dates: start: 20241021
  11. PREDNISONE [Concomitant]
     Active Substance: PREDNISONE
     Dates: start: 20240925

REACTIONS (2)
  - Pneumonitis [Fatal]
  - Pneumonitis [Recovered/Resolved with Sequelae]

NARRATIVE: CASE EVENT DATE: 20241023
